FAERS Safety Report 9421156 (Version 1)
Quarter: 2013Q3

REPORT INFORMATION
  Report Type: Spontaneous
  Country: US (occurrence: US)
  Receive Date: 20130725
  Receipt Date: 20130725
  Transmission Date: 20140515
  Serious: Yes (Death, Hospitalization)
  Sender: FDA-Public Use
  Company Number: PHHY2013US077599

PATIENT
  Age: 20 Year
  Sex: Male
  Weight: 90 kg

DRUGS (6)
  1. DEXAMETHASONE [Suspect]
     Indication: BRAIN OEDEMA
     Dosage: 8 MG PER DAY
  2. DEXAMETHASONE [Suspect]
     Dosage: 3.5 MG DAILY
  3. HYDROCORTISONE [Suspect]
  4. LEVOTHYROXINE [Concomitant]
  5. TESTOSTERONE [Concomitant]
  6. TEMOZOLOMIDE [Concomitant]

REACTIONS (13)
  - Astrocytoma [Fatal]
  - Malignant neoplasm progression [Fatal]
  - Hemiparesis [Unknown]
  - Lethargy [Unknown]
  - Cognitive disorder [Unknown]
  - Motor dysfunction [Unknown]
  - Facial paresis [Unknown]
  - Diabetes insipidus [Unknown]
  - Oligodipsia [Unknown]
  - Hypernatraemia [Unknown]
  - Mucosal dryness [Unknown]
  - Weight decreased [Unknown]
  - Diabetes mellitus [Recovering/Resolving]
